FAERS Safety Report 4606938-4 (Version None)
Quarter: 2005Q1

REPORT INFORMATION
  Report Type: 
  Country: None (occurrence: None)
  Receive Date: 20050309
  Receipt Date: 20050215
  Transmission Date: 20050727
  Serious: Yes (Hospitalization)
  Sender: FDA-Public Use
  Company Number: USA050187967

PATIENT
  Sex: Female

DRUGS (2)
  1. PROZAC WEEKLY [Suspect]
     Dosage: 90 MG
     Dates: start: 20040101
  2. PROZAC [Suspect]
     Dosage: 60 MG
     Dates: end: 20040101

REACTIONS (4)
  - ADVERSE DRUG REACTION [None]
  - BODY TEMPERATURE INCREASED [None]
  - DEPRESSION [None]
  - VOMITING [None]
